FAERS Safety Report 7922355-3 (Version None)
Quarter: 2011Q4

REPORT INFORMATION
  Report Type: 
  Country: None (occurrence: None)
  Receive Date: 20111117
  Receipt Date: 20110118
  Transmission Date: 20120403
  Serious: No
  Sender: FDA-Public Use
  Company Number: US-AMGEN-USASP2011003107

PATIENT
  Age: 59 Year
  Sex: Male

DRUGS (2)
  1. ENBREL [Suspect]
     Indication: PSORIATIC ARTHROPATHY
     Dates: start: 20051123
  2. ENBREL [Suspect]
     Indication: PSORIASIS

REACTIONS (8)
  - ARTHRITIS [None]
  - PYREXIA [None]
  - INJECTION SITE PAIN [None]
  - DENTAL CARIES [None]
  - NERVOUSNESS [None]
  - NASAL CONGESTION [None]
  - NECK PAIN [None]
  - MUSCULOSKELETAL PAIN [None]
